FAERS Safety Report 9202335 (Version 2)
Quarter: 2019Q4

REPORT INFORMATION
  Report Type: Spontaneous
  Country: US (occurrence: US)
  Receive Date: 20130401
  Receipt Date: 20191219
  Transmission Date: 20200122
  Serious: Yes (Hospitalization)
  Sender: FDA-Public Use
  Company Number: US-UCBSA-068735

PATIENT
  Age: 27 Year
  Sex: Female
  Weight: 81.64 kg

DRUGS (2)
  1. CIMZIA [Suspect]
     Active Substance: CERTOLIZUMAB PEGOL
     Indication: CROHN^S DISEASE
     Dosage: 400 MG, EV 4 WEEKS
     Dates: start: 20120727, end: 20120926
  2. IMURAN [Concomitant]
     Active Substance: AZATHIOPRINE

REACTIONS (2)
  - Abscess [Unknown]
  - Decreased immune responsiveness [Recovered/Resolved]

NARRATIVE: CASE EVENT DATE: 2012
